FAERS Safety Report 4418429-4 (Version None)
Quarter: 2004Q3

REPORT INFORMATION
  Report Type: 
  Country: None (occurrence: None)
  Receive Date: 20040809
  Receipt Date: 20040426
  Transmission Date: 20050211
  Serious: No
  Sender: FDA-Public Use
  Company Number: US-GLAXOSMITHKLINE-A0508454A

PATIENT
  Age: 30 Year
  Sex: Female

DRUGS (1)
  1. PAXIL CR [Suspect]
     Indication: PANIC DISORDER
     Dosage: 12.5MG PER DAY
     Route: 048
     Dates: start: 20030501

REACTIONS (6)
  - ANGER [None]
  - CHILLS [None]
  - DIARRHOEA [None]
  - HEART RATE INCREASED [None]
  - HYPERHIDROSIS [None]
  - TREMOR [None]
